FAERS Safety Report 5623698-9 (Version None)
Quarter: 2008Q1

REPORT INFORMATION
  Report Type: 
  Country: None (occurrence: None)
  Receive Date: 20080129
  Receipt Date: 20071019
  Transmission Date: 20080703
  Serious: Yes (Other)
  Sender: FDA-Public Use
  Company Number: WAES 0710USA04015

PATIENT
  Age: 45 Year
  Sex: Male

DRUGS (2)
  1. PRIMAXIN [Suspect]
     Route: 042
  2. ANTIMICROBIAL [Concomitant]

REACTIONS (1)
  - CONVULSION [None]
